FAERS Safety Report 7388059-3 (Version None)
Quarter: 2011Q2

REPORT INFORMATION
  Report Type: 
  Country: None (occurrence: None)
  Receive Date: 20110401
  Receipt Date: 20110328
  Transmission Date: 20111010
  Serious: No
  Sender: FDA-Public Use
  Company Number: US-PFIZER INC-US-WYE-H14299410

PATIENT
  Sex: Male
  Weight: 86.2 kg

DRUGS (8)
  1. ZOLOFT [Suspect]
     Indication: DEPRESSION
     Dosage: 100.0 MG, 1X/DAY
     Route: 048
     Dates: start: 20090901, end: 20100101
  2. LIPITOR [Concomitant]
     Indication: BLOOD CHOLESTEROL INCREASED
     Dosage: 30 MG, 1X/DAY
     Route: 065
     Dates: start: 20060101
  3. LEXAPRO [Suspect]
     Indication: DEPRESSION
     Dosage: 100.0 MG, 1X/DAY
     Route: 065
  4. ACETYLSALICYLIC ACID [Concomitant]
     Indication: PROPHYLAXIS
     Dosage: 81 MG, 1X/DAY
     Route: 065
     Dates: start: 20090101
  5. FISH OIL, HYDROGENATED [Concomitant]
     Dosage: UNK
     Route: 065
     Dates: start: 20090101
  6. EFFEXOR [Suspect]
     Indication: DEPRESSION
     Dosage: 150.0 MG, 2X/DAY
     Route: 048
     Dates: start: 20100101
  7. GEMFIBROZIL [Concomitant]
     Indication: BLOOD TRIGLYCERIDES INCREASED
     Dosage: 600 MG, 2X/DAY
     Route: 048
     Dates: start: 20060101
  8. ZOLOFT [Suspect]
     Dosage: 50.0 MG, 1X/DAY
     Route: 065
     Dates: start: 20100101, end: 20100101

REACTIONS (3)
  - CHILLS [None]
  - DRUG INEFFECTIVE [None]
  - TREMOR [None]
